FAERS Safety Report 22263941 (Version 1)
Quarter: 2023Q2

REPORT INFORMATION
  Report Type: Spontaneous
  Country: CN (occurrence: CN)
  Receive Date: 20230428
  Receipt Date: 20230428
  Transmission Date: 20230722
  Serious: Yes (Hospitalization, Other)
  Sender: FDA-Public Use
  Company Number: None

PATIENT
  Age: 73 Year
  Sex: Male
  Weight: 80 kg

DRUGS (2)
  1. MANNITOL [Suspect]
     Active Substance: MANNITOL
     Indication: Reduction of increased intracranial pressure
     Dosage: 100 MILLILITERS, 4 TIMES DAILY, DOSAGE FORM: INJECTION
     Route: 041
     Dates: start: 20230403, end: 20230413
  2. MANNITOL [Suspect]
     Active Substance: MANNITOL
     Dosage: TWICE DAILY (Q12H)
     Route: 041
     Dates: start: 202304

REACTIONS (6)
  - Renal failure [Recovering/Resolving]
  - Blood urea increased [Unknown]
  - Blood creatinine increased [Unknown]
  - Cystatin C increased [Unknown]
  - Retinol binding protein increased [Unknown]
  - Glomerular filtration rate decreased [Unknown]

NARRATIVE: CASE EVENT DATE: 20230412
